FAERS Safety Report 16731187 (Version 1)
Quarter: 2019Q4

REPORT INFORMATION
  Report Type: Spontaneous
  Country: US (occurrence: US)
  Receive Date: 20190822
  Receipt Date: 20190822
  Transmission Date: 20200122
  Serious: Yes (Other)
  Sender: FDA-Public Use
  Company Number: None

PATIENT
  Age: 16 Year
  Sex: Female
  Weight: 42 kg

DRUGS (8)
  1. LAMICTAL [Concomitant]
     Active Substance: LAMOTRIGINE
  2. CLINDAGEL [Concomitant]
     Active Substance: CLINDAMYCIN PHOSPHATE
  3. CLONAZEPAM. [Concomitant]
     Active Substance: CLONAZEPAM
  4. EPIDIOLEX [Suspect]
     Active Substance: CANNABIDIOL
     Indication: AICARDI^S SYNDROME
     Route: 048
     Dates: start: 20190327
  5. FELBATOL [Concomitant]
     Active Substance: FELBAMATE
  6. CHOLECALCIFEROL [Concomitant]
     Active Substance: CHOLECALCIFEROL
  7. EPIDIOLEX [Suspect]
     Active Substance: CANNABIDIOL
     Indication: EPILEPSY
     Route: 048
     Dates: start: 20190327
  8. ONFI [Concomitant]
     Active Substance: CLOBAZAM

REACTIONS (1)
  - Vomiting [None]
